FAERS Safety Report 18966957 (Version 1)
Quarter: 2021Q1

REPORT INFORMATION
  Report Type: Spontaneous
  Country: IT (occurrence: IT)
  Receive Date: 20210304
  Receipt Date: 20210304
  Transmission Date: 20210420
  Serious: Yes (Other)
  Sender: FDA-Public Use
  Company Number: IT-TEVA-2021-IT-1885452

PATIENT
  Age: 6 Decade
  Sex: Female

DRUGS (2)
  1. CAPECITABINE. [Suspect]
     Active Substance: CAPECITABINE
     Indication: NEUROENDOCRINE TUMOUR OF THE LUNG METASTATIC
     Dosage: 1500 MG/M2 DAILY; FOR 14 DAYS
     Route: 065
     Dates: start: 201301
  2. TEMOZOLOMIDE. [Suspect]
     Active Substance: TEMOZOLOMIDE
     Indication: NEUROENDOCRINE TUMOUR OF THE LUNG METASTATIC
     Dosage: FOR 5 DAYS
     Route: 065
     Dates: start: 201301

REACTIONS (2)
  - Thrombocytopenia [Unknown]
  - Malaise [Unknown]
